FAERS Safety Report 9332681 (Version 3)
Quarter: 2013Q3

REPORT INFORMATION
  Report Type: Spontaneous
  Country: FR (occurrence: None)
  Receive Date: 20130603
  Receipt Date: 20130912
  Transmission Date: 20140515
  Serious: Yes (Hospitalization, Disabling, Other)
  Sender: FDA-Public Use
  Company Number: FR-025154

PATIENT
  Age: 28 Year
  Sex: Female

DRUGS (8)
  1. BUSULFAN [Suspect]
     Indication: ACUTE MYELOID LEUKAEMIA
     Dates: start: 200003, end: 200003
  2. ARACYTINE [Suspect]
     Indication: ACUTE MYELOID LEUKAEMIA
     Dates: start: 19990828
  3. IDARUBICINE (CYCLOPHOSPHAMIDE) [Concomitant]
  4. ENDOXAN (CYCLOPHOSPHAMIDE) [Concomitant]
  5. MITOXANTRONE (MITOXANTRONE) [Concomitant]
  6. AMSACRINE (AMSACRINE) [Concomitant]
  7. VP16 (ETOPOSIDE) [Concomitant]
  8. LEVOTHYROX (LEVOTHYROXINE SODIUM) INFUSION [Concomitant]

REACTIONS (18)
  - Neurotoxicity [None]
  - Wheelchair user [None]
  - Speech disorder [None]
  - Fatigue [None]
  - Fibula fracture [None]
  - Tibia fracture [None]
  - Myelitis transverse [None]
  - Fall [None]
  - Cerebellar syndrome [None]
  - Extrapyramidal disorder [None]
  - Cerebellar atrophy [None]
  - Toxic skin eruption [None]
  - Spinal cord injury thoracic [None]
  - Spinal cord injury cervical [None]
  - Neurological symptom [None]
  - Paraplegia [None]
  - Dysaesthesia [None]
  - Motor dysfunction [None]
